FAERS Safety Report 5426171-6 (Version None)
Quarter: 2007Q3

REPORT INFORMATION
  Report Type: 
  Country: None (occurrence: None)
  Receive Date: 20070827
  Receipt Date: 20070822
  Transmission Date: 20080115
  Serious: Yes (Disabling, Other)
  Sender: FDA-Public Use
  Company Number: A0669207A

PATIENT
  Age: 62 Year
  Sex: Female
  Weight: 71.8 kg

DRUGS (2)
  1. TYKERB [Suspect]
     Indication: BREAST CANCER
     Dosage: 1250MG PER DAY
     Route: 048
     Dates: start: 20070510, end: 20070614
  2. ABRAXANE [Concomitant]
     Dates: start: 20070201

REACTIONS (5)
  - ANOREXIA [None]
  - CONFUSIONAL STATE [None]
  - DEHYDRATION [None]
  - DIARRHOEA [None]
  - WEIGHT DECREASED [None]
